FAERS Safety Report 25019101 (Version 1)
Quarter: 2025Q1

REPORT INFORMATION
  Report Type: Spontaneous
  Country: FR (occurrence: FR)
  Receive Date: 20250227
  Receipt Date: 20250227
  Transmission Date: 20250408
  Serious: Yes (Other)
  Sender: TEVA
  Company Number: None

PATIENT
  Age: 40 Year
  Sex: Female

DRUGS (3)
  1. DIAZEPAM [Suspect]
     Active Substance: DIAZEPAM
     Indication: Dissociative disorder
     Route: 048
     Dates: start: 20241227, end: 20241227
  2. OLANZAPINE [Suspect]
     Active Substance: OLANZAPINE
     Indication: Dissociative disorder
     Route: 048
     Dates: start: 20241227, end: 20241227
  3. PAROXETINE [Suspect]
     Active Substance: PAROXETINE
     Indication: Dissociative disorder
     Route: 048
     Dates: start: 20241227, end: 20241227

REACTIONS (2)
  - Somnolence [Recovered/Resolved]
  - Incorrect dose administered [Recovered/Resolved]

NARRATIVE: CASE EVENT DATE: 20241227
